FAERS Safety Report 14273176 (Version 1)
Quarter: 2017Q4

REPORT INFORMATION
  Report Type: Spontaneous
  Country: SI (occurrence: SI)
  Receive Date: 20171211
  Receipt Date: 20171211
  Transmission Date: 20180321
  Serious: Yes (Hospitalization)
  Sender: FDA-Public Use
  Company Number: SI-BIOGEN-2017BI00492392

PATIENT
  Age: 40 Year
  Sex: Male

DRUGS (1)
  1. AVONEX [Suspect]
     Active Substance: INTERFERON BETA-1A
     Indication: MULTIPLE SCLEROSIS
     Route: 030
     Dates: start: 2011

REACTIONS (3)
  - Multiple sclerosis relapse [Recovered/Resolved]
  - Dizziness [Unknown]
  - Bradycardia [Unknown]

NARRATIVE: CASE EVENT DATE: 201303
